FAERS Safety Report 23661273 (Version 1)
Quarter: 2024Q1

REPORT INFORMATION
  Report Type: Other
  Country: DE (occurrence: DE)
  Receive Date: 20240322
  Receipt Date: 20240322
  Transmission Date: 20240410
  Serious: Yes (Other)
  Sender: FDA-Public Use
  Company Number: DE-BIOCON BIOLOGICS LIMITED-BBL2024001738

PATIENT

DRUGS (6)
  1. ADALIMUMAB [Suspect]
     Active Substance: ADALIMUMAB\ISOPROPYL ALCOHOL
     Indication: Crohn^s disease
     Dosage: UNK
     Route: 058
     Dates: start: 201602, end: 201812
  2. INFLIXIMAB [Concomitant]
     Active Substance: INFLIXIMAB
     Indication: Product used for unknown indication
     Dosage: UNK
     Route: 065
  3. AZATHIOPRINE [Concomitant]
     Active Substance: AZATHIOPRINE
     Indication: Product used for unknown indication
     Dosage: UNK
     Route: 065
  4. USTEKINUMAB [Concomitant]
     Active Substance: USTEKINUMAB
     Indication: Product used for unknown indication
     Dosage: UNK
     Route: 065
  5. VEDOLIZUMAB [Concomitant]
     Active Substance: VEDOLIZUMAB
     Indication: Product used for unknown indication
     Dosage: UNK
     Route: 065
  6. METHOTREXATE [Concomitant]
     Active Substance: METHOTREXATE
     Indication: Crohn^s disease
     Dosage: UNK
     Route: 065

REACTIONS (11)
  - Fistula [Unknown]
  - Anal fistula [Unknown]
  - Crohn^s disease [Recovered/Resolved]
  - Crohn^s disease [Unknown]
  - Functional gastrointestinal disorder [Unknown]
  - Hypoalbuminaemia [Unknown]
  - Malabsorption [Unknown]
  - Faecal calprotectin increased [Unknown]
  - Hypophosphataemia [Unknown]
  - Staphylococcal infection [Unknown]
  - Device related infection [Unknown]

NARRATIVE: CASE EVENT DATE: 20160901
